FAERS Safety Report 7378427-8 (Version None)
Quarter: 2011Q1

REPORT INFORMATION
  Report Type: 
  Country: None (occurrence: None)
  Receive Date: 20110328
  Receipt Date: 20110323
  Transmission Date: 20110831
  Serious: Yes (Life-Threatening)
  Sender: FDA-Public Use
  Company Number: IT-MERCK-1103ITA00038

PATIENT
  Age: 80 Year
  Sex: Female

DRUGS (8)
  1. LERCANIDIPINE HYDROCHLORIDE [Concomitant]
     Route: 065
  2. LANSOPRAZOLE [Concomitant]
     Route: 048
  3. GLIMEPIRIDE [Concomitant]
     Route: 048
  4. BROMAZEPAM [Suspect]
     Route: 048
     Dates: start: 20110301, end: 20110302
  5. FOSAMAX [Suspect]
     Indication: OSTEOPOROSIS
     Route: 048
     Dates: start: 20110223, end: 20110302
  6. METFORMIN [Concomitant]
     Route: 065
  7. PREDNISONE [Concomitant]
     Route: 048
  8. TORSEMIDE [Concomitant]
     Route: 048

REACTIONS (2)
  - AGRANULOCYTOSIS [None]
  - SYSTEMIC INFLAMMATORY RESPONSE SYNDROME [None]
